FAERS Safety Report 12346219 (Version 1)
Quarter: 2016Q2

REPORT INFORMATION
  Report Type: Spontaneous
  Country: US (occurrence: None)
  Receive Date: 20160506
  Receipt Date: 20160506
  Transmission Date: 20160815
  Serious: Yes (Hospitalization)
  Sender: FDA-Public Use
  Company Number: None

PATIENT
  Age: 59 Year
  Sex: Male

DRUGS (10)
  1. CENTRUM TAB SILVER [Concomitant]
  2. FISH OIL [Concomitant]
     Active Substance: FISH OIL
  3. ASPIRIN. [Concomitant]
     Active Substance: ASPIRIN
  4. AFINITOR [Suspect]
     Active Substance: EVEROLIMUS
     Indication: RENAL CANCER
     Route: 048
     Dates: start: 20151019, end: 20160421
  5. CYPROHEPTAD [Concomitant]
  6. CLOTRIMAZOLE. [Concomitant]
     Active Substance: CLOTRIMAZOLE
  7. VITAMIN C [Concomitant]
     Active Substance: ASCORBIC ACID
  8. VITAMIN B COMPLEX [Concomitant]
     Active Substance: CYANOCOBALAMIN\DEXPANTHENOL\NIACINAMIDE\PYRIDOXINE HYDROCHLORIDE\RIBOFLAVIN 5^-PHOSPHATE SODIUM\THIAMINE HYDROCHLORIDE\VITAMIN B COMPLEX
  9. OMEPRAZOLE. [Concomitant]
     Active Substance: OMEPRAZOLE
  10. IRON [Concomitant]
     Active Substance: IRON

REACTIONS (4)
  - Cough [None]
  - Dyspnoea [None]
  - Pleural effusion [None]
  - Hospitalisation [None]

NARRATIVE: CASE EVENT DATE: 20160421
